FAERS Safety Report 12080530 (Version 2)
Quarter: 2016Q2

REPORT INFORMATION
  Report Type: Spontaneous
  Country: DE (occurrence: DE)
  Receive Date: 20160216
  Receipt Date: 20160523
  Transmission Date: 20160815
  Serious: Yes (Hospitalization, Other)
  Sender: FDA-Public Use
  Company Number: DE-BAXTER-2016BAX006838

PATIENT
  Age: 39 Year
  Sex: Male

DRUGS (30)
  1. RITUXIMAB [Suspect]
     Active Substance: RITUXIMAB
     Dosage: D29
     Route: 065
     Dates: start: 20150928
  2. CISPLATIN TEVA [Suspect]
     Active Substance: CISPLATIN
     Indication: DIFFUSE LARGE B-CELL LYMPHOMA
     Dosage: 1ST CYCLE R-VIP-E
     Route: 065
     Dates: start: 20151017, end: 20151018
  3. CARMUSTINE [Suspect]
     Active Substance: CARMUSTINE
     Indication: DIFFUSE LARGE B-CELL LYMPHOMA
     Dosage: PR:HD; D7
     Route: 065
     Dates: start: 20151126, end: 20151201
  4. HOLOXAN [Suspect]
     Active Substance: IFOSFAMIDE
     Indication: DIFFUSE LARGE B-CELL LYMPHOMA
     Dosage: 1ST CYCLE R-VIP-E; D1
     Route: 065
     Dates: start: 20151017, end: 20151018
  5. EPIRUBICIN HCL [Suspect]
     Active Substance: EPIRUBICIN HYDROCHLORIDE
     Indication: ANAPLASTIC LYMPHOMA KINASE GENE MUTATION
     Dosage: 2ND CYCLE R-VIP-E
     Route: 065
     Dates: start: 20151107, end: 20151108
  6. RITUXIMAB [Suspect]
     Active Substance: RITUXIMAB
     Dosage: 1ST CYCLE R-VIP-E; D0
     Route: 065
     Dates: start: 20151017, end: 20151018
  7. CISPLATIN TEVA [Suspect]
     Active Substance: CISPLATIN
     Indication: ANAPLASTIC LYMPHOMA KINASE GENE MUTATION
     Dosage: 2ND CYCLE R-VIP-E
     Route: 065
     Dates: start: 20151107, end: 20151108
  8. RITUXIMAB [Suspect]
     Active Substance: RITUXIMAB
     Indication: DIFFUSE LARGE B-CELL LYMPHOMA
     Route: 065
     Dates: start: 20150826, end: 20150911
  9. RITUXIMAB [Suspect]
     Active Substance: RITUXIMAB
     Indication: ANAPLASTIC LYMPHOMA KINASE GENE MUTATION
     Dosage: D22
     Route: 065
     Dates: start: 20150918
  10. ETOPOSIDE. [Suspect]
     Active Substance: ETOPOSIDE
     Indication: DIFFUSE LARGE B-CELL LYMPHOMA
     Dosage: 1ST CYCLE R-VIP-E
     Route: 065
     Dates: start: 20151017, end: 20151018
  11. ETOPOSIDE. [Suspect]
     Active Substance: ETOPOSIDE
     Indication: ANAPLASTIC LYMPHOMA KINASE GENE MUTATION
     Dosage: 2ND CYCLE R-VIP-E
     Route: 065
     Dates: start: 20151107, end: 20151108
  12. METHOTREXATE SODIUM. [Suspect]
     Active Substance: METHOTREXATE SODIUM
     Indication: ANAPLASTIC LYMPHOMA KINASE GENE MUTATION
  13. RITUXIMAB [Suspect]
     Active Substance: RITUXIMAB
     Dosage: 2ND CYCLE R-VIP-E; D0
     Route: 065
     Dates: start: 20151107, end: 20151108
  14. MELPHALAN [Suspect]
     Active Substance: MELPHALAN
     Indication: DIFFUSE LARGE B-CELL LYMPHOMA
     Dosage: D2
     Route: 065
     Dates: start: 20151126, end: 20151201
  15. HOLOXAN [Suspect]
     Active Substance: IFOSFAMIDE
     Indication: ANAPLASTIC LYMPHOMA KINASE GENE MUTATION
     Dosage: 2ND CYCLE R-VIP-E; D1
     Route: 065
     Dates: start: 20151107, end: 20151108
  16. ENDOXAN 1G [Suspect]
     Active Substance: CYCLOPHOSPHAMIDE
     Indication: ANAPLASTIC LYMPHOMA KINASE GENE MUTATION
     Dosage: D33
     Route: 065
     Dates: start: 20150928
  17. METHOTREXATE SODIUM. [Suspect]
     Active Substance: METHOTREXATE SODIUM
     Indication: DIFFUSE LARGE B-CELL LYMPHOMA
     Dosage: D30
     Route: 065
     Dates: start: 20150928
  18. PREDNISONE. [Suspect]
     Active Substance: PREDNISONE
     Indication: ANAPLASTIC LYMPHOMA KINASE GENE MUTATION
     Dosage: D33
     Route: 065
     Dates: start: 20150928
  19. ETOPOSIDE. [Suspect]
     Active Substance: ETOPOSIDE
     Dosage: D6 (3)
     Route: 065
     Dates: start: 20151126, end: 20151201
  20. CYTARABINE. [Suspect]
     Active Substance: CYTARABINE
     Indication: ANAPLASTIC LYMPHOMA KINASE GENE MUTATION
  21. VINCRISTINE [Suspect]
     Active Substance: VINCRISTINE
     Indication: ANAPLASTIC LYMPHOMA KINASE GENE MUTATION
     Dosage: D33
     Route: 065
     Dates: start: 20150928
  22. CARMUSTINE [Suspect]
     Active Substance: CARMUSTINE
     Indication: ANAPLASTIC LYMPHOMA KINASE GENE MUTATION
  23. CYTARABINE. [Suspect]
     Active Substance: CYTARABINE
     Indication: DIFFUSE LARGE B-CELL LYMPHOMA
     Dosage: D6 (3)
     Route: 065
     Dates: start: 20151126, end: 20151201
  24. ENDOXAN 1G [Suspect]
     Active Substance: CYCLOPHOSPHAMIDE
     Indication: DIFFUSE LARGE B-CELL LYMPHOMA
     Route: 065
     Dates: start: 20150826, end: 20150911
  25. EPIRUBICIN HCL [Suspect]
     Active Substance: EPIRUBICIN HYDROCHLORIDE
     Indication: DIFFUSE LARGE B-CELL LYMPHOMA
     Dosage: 1ST CYCLE R-VIP-E
     Route: 065
     Dates: start: 20151017, end: 20151018
  26. DOXORUBICIN HCL [Suspect]
     Active Substance: DOXORUBICIN HYDROCHLORIDE
     Indication: DIFFUSE LARGE B-CELL LYMPHOMA
     Route: 065
     Dates: start: 20150826, end: 20150911
  27. DOXORUBICIN HCL [Suspect]
     Active Substance: DOXORUBICIN HYDROCHLORIDE
     Indication: ANAPLASTIC LYMPHOMA KINASE GENE MUTATION
     Dosage: D33
     Route: 065
     Dates: start: 20150928
  28. MELPHALAN [Suspect]
     Active Substance: MELPHALAN
     Indication: ANAPLASTIC LYMPHOMA KINASE GENE MUTATION
  29. PREDNISONE. [Suspect]
     Active Substance: PREDNISONE
     Indication: DIFFUSE LARGE B-CELL LYMPHOMA
     Route: 065
     Dates: start: 20150826, end: 20150911
  30. VINCRISTINE [Suspect]
     Active Substance: VINCRISTINE
     Indication: DIFFUSE LARGE B-CELL LYMPHOMA
     Route: 065
     Dates: start: 20150826, end: 20150911

REACTIONS (7)
  - Non-Hodgkin^s lymphoma [Not Recovered/Not Resolved]
  - Lung infiltration [Unknown]
  - Bronchiolitis [Unknown]
  - Atelectasis [Unknown]
  - Lymphadenopathy [Unknown]
  - Pericardial effusion [Unknown]
  - Pulmonary embolism [Unknown]

NARRATIVE: CASE EVENT DATE: 20150917
